FAERS Safety Report 16659027 (Version 3)
Quarter: 2019Q4

REPORT INFORMATION
  Report Type: Report from Study
  Country: None (occurrence: FR)
  Receive Date: 20190801
  Receipt Date: 20191202
  Transmission Date: 20200122
  Serious: Yes (Hospitalization, Other)
  Sender: FDA-Public Use
  Company Number: FR-ABBVIE-19S-056-2793921-00

PATIENT
  Age: 75 Year
  Sex: Male
  Weight: 67 kg

DRUGS (2)
  1. DUODOPA [Suspect]
     Active Substance: CARBIDOPA\LEVODOPA
     Indication: PARKINSON^S DISEASE
     Dosage: MD: 13 ML; CD: 5.5 ML/HR FROM 7AM TO 9PM; ED: 3 ML
     Route: 050
     Dates: start: 20190401, end: 20190612
  2. DUODOPA [Suspect]
     Active Substance: CARBIDOPA\LEVODOPA
     Route: 050
     Dates: start: 20190701, end: 2019

REACTIONS (8)
  - Colostomy [Not Recovered/Not Resolved]
  - Weight decreased [Not Recovered/Not Resolved]
  - Anaemia [Not Recovered/Not Resolved]
  - Diarrhoea [Recovering/Resolving]
  - Colon neoplasm [Not Recovered/Not Resolved]
  - Incorrect route of product administration [Unknown]
  - Device expulsion [Unknown]
  - Posture abnormal [Unknown]

NARRATIVE: CASE EVENT DATE: 2019
